FAERS Safety Report 23046405 (Version 1)
Quarter: 2023Q4

REPORT INFORMATION
  Report Type: Spontaneous
  Country: CA (occurrence: CA)
  Receive Date: 20231009
  Receipt Date: 20231009
  Transmission Date: 20240110
  Serious: Yes (Other)
  Sender: FDA-Public Use
  Company Number: CA-PFIZER INC-202200539861

PATIENT
  Age: 54 Year
  Sex: Female
  Weight: 83.9 kg

DRUGS (10)
  1. SULFASALAZINE [Suspect]
     Active Substance: SULFASALAZINE
     Indication: Crohn^s disease
     Dosage: 1000 MG, 3X/DAY
     Route: 048
     Dates: start: 2020
  2. SULFASALAZINE [Suspect]
     Active Substance: SULFASALAZINE
     Indication: Arthropathy
     Dosage: 1500 MG, 2X/DAY
     Route: 048
     Dates: start: 2021
  3. SULFASALAZINE [Suspect]
     Active Substance: SULFASALAZINE
     Dosage: 1000 MG, 3X/DAY (500 MG 2 TABLET(S) THREE TIMES DAILY)
     Route: 048
  4. FOLIC ACID [Concomitant]
     Active Substance: FOLIC ACID
     Dosage: 5 MG, 1X/DAY,[ONCE DAILY X 3 MTH30] [5 MG OD]
     Route: 048
  5. FOLIC ACID [Concomitant]
     Active Substance: FOLIC ACID
     Dosage: 5 MG, WEEKLY (5 MG ON SATURDAY)
     Route: 048
  6. INFLECTRA [Concomitant]
     Active Substance: INFLIXIMAB-DYYB
     Indication: Crohn^s disease
     Dosage: 1 DF, DOSAGE INFO: UNKNOWN
     Route: 042
     Dates: start: 202204, end: 202211
  7. INFLECTRA [Concomitant]
     Active Substance: INFLIXIMAB-DYYB
     Dosage: 1 DF, EVERY 4 WEEKS, DOSAGE INFO: UNKNOWN
     Route: 042
     Dates: start: 202211
  8. IMURAN [Concomitant]
     Active Substance: AZATHIOPRINE
     Dosage: 50 MG, 2X/DAY
  9. IMURAN [Concomitant]
     Active Substance: AZATHIOPRINE
     Dosage: 100 MG, 1X/DAY [50MG 2 TABLET(S) ONCE DAILY X 3 MTH30]
  10. METHOTREXATE SODIUM [Concomitant]
     Active Substance: METHOTREXATE SODIUM
     Dosage: UNK
     Dates: start: 202102, end: 202211

REACTIONS (15)
  - Crohn^s disease [Unknown]
  - Intestinal obstruction [Unknown]
  - Drug ineffective [Unknown]
  - Abdominal pain upper [Unknown]
  - Nausea [Unknown]
  - Normocytic anaemia [Unknown]
  - Intestinal fibrosis [Unknown]
  - Hepatic cyst [Unknown]
  - COVID-19 [Not Recovered/Not Resolved]
  - Alanine aminotransferase increased [Unknown]
  - Condition aggravated [Not Recovered/Not Resolved]
  - Eructation [Recovering/Resolving]
  - Dyspepsia [Recovering/Resolving]
  - Pseudopolyp [Unknown]
  - Faecal calprotectin increased [Unknown]

NARRATIVE: CASE EVENT DATE: 20210101
